FAERS Safety Report 9486029 (Version 2)
Quarter: 2014Q1

REPORT INFORMATION
  Report Type: Report from Study
  Country: GB (occurrence: GB)
  Receive Date: 20130829
  Receipt Date: 20140319
  Transmission Date: 20141002
  Serious: Yes (Hospitalization)
  Sender: FDA-Public Use
  Company Number: GB-JNJFOC-20130811932

PATIENT
  Age: 28 Year
  Sex: Male
  Weight: 89 kg

DRUGS (4)
  1. STELARA [Suspect]
     Indication: PSORIASIS
     Route: 058
     Dates: start: 20111114, end: 20130729
  2. TRAMADOL [Concomitant]
     Route: 065
     Dates: start: 20110815
  3. NYSTATIN [Concomitant]
     Route: 065
     Dates: start: 20120715
  4. CELECOXIB [Concomitant]
     Route: 065
     Dates: start: 20120213

REACTIONS (4)
  - Pustular psoriasis [Recovered/Resolved]
  - Diarrhoea [Recovered/Resolved]
  - Vomiting [Recovered/Resolved]
  - Drug ineffective [Unknown]
